FAERS Safety Report 5692452-4 (Version None)
Quarter: 2008Q2

REPORT INFORMATION
  Report Type: 
  Country: None (occurrence: None)
  Receive Date: 20080402
  Receipt Date: 20070904
  Transmission Date: 20081010
  Serious: No
  Sender: FDA-Public Use
  Company Number: US-BAYER-US-2007-033450

PATIENT
  Age: 65 Year
  Sex: Female
  Weight: 79 kg

DRUGS (10)
  1. LEUKINE [Suspect]
     Indication: PROPHYLAXIS
     Dosage: UNIT DOSE: 450 ?G
     Route: 058
     Dates: start: 20070626, end: 20070717
  2. BENZOTROPINE [Concomitant]
  3. COLACE [Concomitant]
  4. RANITIDINE [Concomitant]
  5. LORTAB [Concomitant]
  6. VITAMIN CAP [Concomitant]
  7. CALCIUM [Concomitant]
  8. CLONAZEPAM [Concomitant]
  9. CHANTIX [Concomitant]
  10. LOXIOINE [Concomitant]

REACTIONS (3)
  - DYSPNOEA [None]
  - FLUSHING [None]
  - PRESYNCOPE [None]
